FAERS Safety Report 8864513 (Version 1)
Quarter: 2012Q4

REPORT INFORMATION
  Report Type: 
  Country: US (occurrence: US)
  Receive Date: 20121024
  Receipt Date: 20121024
  Transmission Date: 20130627
  Serious: No
  Sender: FDA-Public Use
  Company Number: US-AMGEN-USASP2011067891

PATIENT
  Age: 50 Year
  Sex: Male
  Weight: 75.74 kg

DRUGS (4)
  1. ENBREL [Suspect]
     Indication: PRODUCT USED FOR UNKNOWN INDICATION
     Dosage: 50 mg, qwk
  2. TOPROL [Concomitant]
     Dosage: 10 mg, UNK
  3. VITAMIN D /00107901/ [Concomitant]
     Dosage: UNK
  4. ALOPURINOL [Concomitant]
     Dosage: 100 mg, UNK

REACTIONS (1)
  - Visual impairment [Unknown]
